FAERS Safety Report 16150226 (Version 1)
Quarter: 2019Q2

REPORT INFORMATION
  Report Type: Spontaneous
  Country: HU (occurrence: HU)
  Receive Date: 20190402
  Receipt Date: 20190402
  Transmission Date: 20190711
  Serious: Yes (Disabling)
  Sender: FDA-Public Use
  Company Number: HU-ALLERGAN-1914120US

PATIENT
  Sex: Male

DRUGS (9)
  1. QUETIAPIN [Concomitant]
     Active Substance: QUETIAPINE
     Route: 065
  2. ANAFRANIL [Concomitant]
     Active Substance: CLOMIPRAMINE HYDROCHLORIDE
     Route: 065
  3. BETALOC [Concomitant]
     Active Substance: METOPROLOL TARTRATE
     Route: 065
  4. ESCITIL [Concomitant]
     Route: 065
  5. FRONTIN [Concomitant]
     Active Substance: ALPRAZOLAM
     Route: 065
  6. KVENTIAX PROLONG [Concomitant]
     Route: 065
  7. CARIPRAZINE HCL - BP [Suspect]
     Active Substance: CARIPRAZINE HYDROCHLORIDE
     Indication: PRODUCT USED FOR UNKNOWN INDICATION
     Route: 065
     Dates: end: 20190313
  8. ATORVASTATIN [Concomitant]
     Active Substance: ATORVASTATIN
     Route: 065
  9. HALIDOR [Concomitant]
     Route: 065

REACTIONS (7)
  - Rash [Unknown]
  - Dizziness [Unknown]
  - Balance disorder [Unknown]
  - Dysuria [Recovered/Resolved]
  - Fatigue [Unknown]
  - Increased appetite [Unknown]
  - Asthenia [Unknown]
